FAERS Safety Report 12114533 (Version 3)
Quarter: 2016Q1

REPORT INFORMATION
  Report Type: Spontaneous
  Country: BE (occurrence: BE)
  Receive Date: 20160225
  Receipt Date: 20160329
  Transmission Date: 20160526
  Serious: Yes (Hospitalization, Other)
  Sender: FDA-Public Use
  Company Number: BE-BAYER-2016-031921

PATIENT
  Age: 78 Year
  Sex: Male
  Weight: 71 kg

DRUGS (12)
  1. XOFIGO [Suspect]
     Active Substance: RADIUM RA-223 DICHLORIDE
     Indication: PROSTATE CANCER
     Dosage: 3.55 (UNSPECIFIED UNIT), UNK
     Dates: start: 20151125
  2. FRAXODI [Concomitant]
     Active Substance: NADROPARIN CALCIUM
     Dosage: 15.200 IU, QD
     Route: 058
  3. ZOLADEX LA [Concomitant]
     Active Substance: GOSERELIN ACETATE
     Dosage: 10.8 MG, Q3MON
     Route: 058
  4. XOFIGO [Suspect]
     Active Substance: RADIUM RA-223 DICHLORIDE
     Indication: CANCER PAIN
  5. ALDACTAZINE [Concomitant]
     Active Substance: ALTHIAZIDE\SPIRONOLACTONE
     Dosage: UNK
     Route: 048
  6. LIPANTHYL [Concomitant]
     Active Substance: FENOFIBRATE
     Dosage: 267 MG, QD
     Route: 048
  7. CALCIUM CARBONATE W/COLECALCIFEROL [Concomitant]
     Active Substance: CALCIUM CARBONATE\CHOLECALCIFEROL
     Dosage: UNK
     Route: 048
  8. FOLAVIT [Concomitant]
     Dosage: 4 MG, QD
     Route: 048
  9. XGEVA [Concomitant]
     Active Substance: DENOSUMAB
     Dosage: 120 MG, Q4WK
     Route: 058
  10. PANTOPRAZOLE SODIUM. [Concomitant]
     Active Substance: PANTOPRAZOLE SODIUM
     Dosage: 20 MG, QD
     Route: 048
  11. IBUPROFENE EG [Concomitant]
     Dosage: 400 MG, TID
     Route: 048
  12. LAXIDO [Concomitant]
     Active Substance: POLYETHYLENE GLYCOL 3350\POTASSIUM CHLORIDE\SODIUM BICARBONATE\SODIUM CHLORIDE
     Dosage: 13.7 G, UNK
     Route: 048

REACTIONS (5)
  - General physical health deterioration [None]
  - General physical health deterioration [Not Recovered/Not Resolved]
  - Fall [None]
  - Anaemia [None]
  - Muscular weakness [Not Recovered/Not Resolved]

NARRATIVE: CASE EVENT DATE: 20160214
